FAERS Safety Report 7511425-X (Version None)
Quarter: 2011Q2

REPORT INFORMATION
  Report Type: 
  Country: None (occurrence: None)
  Receive Date: 20110519
  Receipt Date: 20110504
  Transmission Date: 20111010
  Serious: Yes (Hospitalization)
  Sender: FDA-Public Use
  Company Number: AUR-APL-2011-01605

PATIENT
  Age: 79 Year
  Sex: Male

DRUGS (9)
  1. DEPAKENE [Concomitant]
  2. SEROQUEL [Concomitant]
  3. LANOXIN [Concomitant]
  4. LORAZEPAM [Concomitant]
  5. LASIX [Concomitant]
  6. ALLOPURINOL [Concomitant]
  7. METFORMIN HYDROCHLORIDE [Suspect]
     Indication: DIABETES MELLITUS
     Dosage: 2 GRAMS, DAILY, ORAL
     Route: 048
     Dates: start: 20110102, end: 20110322
  8. LANTUS [Suspect]
     Indication: DIABETES MELLITUS
     Dosage: 24 IU-QD, SUBCUTANEOUS
     Route: 058
     Dates: start: 20110102, end: 20110322
  9. LEUCOVORIN CALCIUM [Concomitant]

REACTIONS (2)
  - HYPOGLYCAEMIA [None]
  - PSYCHOMOTOR HYPERACTIVITY [None]
